FAERS Safety Report 7549299-3 (Version None)
Quarter: 2011Q2

REPORT INFORMATION
  Report Type: 
  Country: None (occurrence: None)
  Receive Date: 20110615
  Receipt Date: 20010905
  Transmission Date: 20111010
  Serious: Yes (Hospitalization)
  Sender: FDA-Public Use
  Company Number: PHEH2001US07444

PATIENT

DRUGS (5)
  1. ASPIRIN [Concomitant]
  2. COLCHICINE [Concomitant]
  3. EXELON [Suspect]
     Indication: DEMENTIA ALZHEIMER'S TYPE
     Dosage: 1.5 MG, BID
     Route: 048
     Dates: start: 20010402
  4. PLAVIX [Concomitant]
  5. TEQUIN [Concomitant]

REACTIONS (5)
  - CONVULSION [None]
  - KIDNEY INFECTION [None]
  - BACK PAIN [None]
  - HEMIPARESIS [None]
  - BODY TEMPERATURE INCREASED [None]
